FAERS Safety Report 4948508-4 (Version None)
Quarter: 2006Q1

REPORT INFORMATION
  Report Type: 
  Country: None (occurrence: None)
  Receive Date: 20060320
  Receipt Date: 20060208
  Transmission Date: 20060701
  Serious: Yes (Hospitalization, Disabling)
  Sender: FDA-Public Use
  Company Number: US-MERCK-0602USA02281

PATIENT
  Age: 74 Year
  Sex: Male
  Weight: 70 kg

DRUGS (1)
  1. VIOXX [Suspect]
     Indication: ARTHRITIS
     Route: 048
     Dates: start: 19991228, end: 20040901

REACTIONS (4)
  - APATHY [None]
  - EMOTIONAL DISORDER [None]
  - MYOCARDIAL INFARCTION [None]
  - NEPHROLITHIASIS [None]
